FAERS Safety Report 10393543 (Version 1)
Quarter: 2014Q3

REPORT INFORMATION
  Report Type: Spontaneous
  Country: US (occurrence: US)
  Receive Date: 20140819
  Receipt Date: 20140819
  Transmission Date: 20150326
  Serious: Yes (Other)
  Sender: FDA-Public Use
  Company Number: US-BAYER-2014-120875

PATIENT
  Sex: Male

DRUGS (7)
  1. BETASERON [Suspect]
     Active Substance: INTERFERON BETA-1B
  2. AVONEX [Suspect]
     Active Substance: INTERFERON BETA-1A
  3. TYSABRI [Suspect]
     Active Substance: NATALIZUMAB
  4. REBIF [Suspect]
     Active Substance: INTERFERON BETA-1A
  5. GILENYA [Suspect]
     Active Substance: FINGOLIMOD HYDROCHLORIDE
  6. COPAXONE [Suspect]
     Active Substance: GLATIRAMER ACETATE
  7. TECFIDERA [Suspect]
     Active Substance: DIMETHYL FUMARATE

REACTIONS (4)
  - Multiple sclerosis relapse [None]
  - Drug effect incomplete [None]
  - Hepatic enzyme increased [None]
  - Immunodeficiency [None]
